FAERS Safety Report 24378266 (Version 1)
Quarter: 2024Q3

REPORT INFORMATION
  Report Type: Spontaneous
  Country: FR (occurrence: FR)
  Receive Date: 20240930
  Receipt Date: 20240930
  Transmission Date: 20241017
  Serious: Yes (Hospitalization, Other)
  Sender: FRESENIUS KABI
  Company Number: None

PATIENT
  Age: 27 Year
  Sex: Male
  Weight: 72 kg

DRUGS (8)
  1. ACETAMINOPHEN [Suspect]
     Active Substance: ACETAMINOPHEN
     Indication: Pyrexia
     Dosage: 4 G, DAILY
     Route: 042
     Dates: end: 20170807
  2. AUGMENTIN [Suspect]
     Active Substance: AMOXICILLIN\CLAVULANATE POTASSIUM
     Indication: Pyrexia
     Dosage: 3 G, DAILY
     Route: 042
     Dates: end: 20170810
  3. LOMUSTINE [Suspect]
     Active Substance: LOMUSTINE
     Indication: Glioneuronal tumour
     Dosage: 160 MG, DAILY?FORM OF ADMIN.: CAPSULE, HARD
     Route: 048
     Dates: start: 20170301, end: 20170712
  4. PROCARBAZINE HYDROCHLORIDE [Suspect]
     Active Substance: PROCARBAZINE HYDROCHLORIDE
     Indication: Glioneuronal tumour
     Dosage: 100 MG, DAILY
     Route: 048
     Dates: end: 20170801
  5. KEPPRA [Suspect]
     Active Substance: LEVETIRACETAM
     Indication: Epilepsy
     Dosage: 750 MG, BID (2 DF DAILY)?FORM OF ADMIN.: FILM-COATED TABLET
     Route: 048
  6. VINCRISTINE [Suspect]
     Active Substance: VINCRISTINE
     Indication: Glioneuronal tumour
     Dosage: 2 MG, DAILY
     Route: 042
     Dates: end: 20170719
  7. LEVOFLOXACIN [Suspect]
     Active Substance: LEVOFLOXACIN
     Indication: Pyrexia
     Dosage: UNKNOWN
     Route: 048
     Dates: end: 20170810
  8. TEMODAL [Concomitant]
     Active Substance: TEMOZOLOMIDE
     Indication: Glioneuronal tumour
     Dosage: UNKNOWN

REACTIONS (4)
  - Liver injury [Recovering/Resolving]
  - Neutropenia [Unknown]
  - Overdose [Recovered/Resolved]
  - Inappropriate schedule of product administration [Recovered/Resolved]

NARRATIVE: CASE EVENT DATE: 20170301
